FAERS Safety Report 12713165 (Version 3)
Quarter: 2017Q3

REPORT INFORMATION
  Report Type: Report from Study
  Country: US (occurrence: US)
  Receive Date: 20160902
  Receipt Date: 20170807
  Transmission Date: 20171127
  Serious: Yes (Death, Hospitalization)
  Sender: FDA-Public Use
  Company Number: US-ACTELION-A-NJ2016-141581

PATIENT
  Age: 55 Year
  Sex: Female
  Weight: 77.98 kg

DRUGS (4)
  1. UPTRAVI [Suspect]
     Active Substance: SELEXIPAG
     Indication: PULMONARY HYPERTENSION
     Dosage: 1000 MCG, BID
     Route: 048
  2. LETAIRIS [Concomitant]
     Active Substance: AMBRISENTAN
  3. UPTRAVI [Suspect]
     Active Substance: SELEXIPAG
     Dosage: 1400 MCG, BID
     Route: 048
     Dates: start: 20160503
  4. ADCIRCA [Concomitant]
     Active Substance: TADALAFIL

REACTIONS (5)
  - Death [Fatal]
  - Peripheral swelling [Unknown]
  - Fall [Unknown]
  - Cardiac disorder [Unknown]
  - Rib fracture [Unknown]

NARRATIVE: CASE EVENT DATE: 201608
